FAERS Safety Report 17532594 (Version 3)
Quarter: 2021Q2

REPORT INFORMATION
  Report Type: Spontaneous
  Country: UZ (occurrence: UZ)
  Receive Date: 20200312
  Receipt Date: 20210414
  Transmission Date: 20210716
  Serious: Yes (Other)
  Sender: FDA-Public Use
  Company Number: UZ-JNJFOC-20191244683

PATIENT
  Age: 28 Year
  Sex: Male
  Weight: 77 kg

DRUGS (12)
  1. SIRTURO [Suspect]
     Active Substance: BEDAQUILINE FUMARATE
     Route: 048
     Dates: start: 20200109
  2. CLOFAZIMINE [Suspect]
     Active Substance: CLOFAZIMINE
     Indication: TUBERCULOSIS
     Dates: start: 20191003, end: 20191127
  3. SIRTURO [Suspect]
     Active Substance: BEDAQUILINE FUMARATE
     Indication: TUBERCULOSIS
     Route: 048
     Dates: start: 20191003, end: 201910
  4. LINEZOLID. [Suspect]
     Active Substance: LINEZOLID
     Dates: start: 20200109, end: 202006
  5. CYCLOSERINE. [Concomitant]
     Active Substance: CYCLOSERINE
     Route: 065
     Dates: start: 20200109
  6. SIRTURO [Suspect]
     Active Substance: BEDAQUILINE FUMARATE
     Route: 048
     Dates: start: 201910, end: 20191127
  7. LINEZOLID. [Suspect]
     Active Substance: LINEZOLID
     Indication: TUBERCULOSIS
     Dates: start: 20191003, end: 20191127
  8. LINEZOLID. [Suspect]
     Active Substance: LINEZOLID
     Dates: start: 2020, end: 20200929
  9. CLOFAZIMINE [Suspect]
     Active Substance: CLOFAZIMINE
     Dates: start: 20200109
  10. LEVOFLOXACIN. [Concomitant]
     Active Substance: LEVOFLOXACIN
     Indication: TUBERCULOSIS
     Route: 065
     Dates: start: 20191003, end: 20191127
  11. LEVOFLOXACIN. [Concomitant]
     Active Substance: LEVOFLOXACIN
     Dosage: 1000 (UNITS UNSPECIFIED).
     Route: 065
     Dates: start: 20200109
  12. CYCLOSERINE. [Concomitant]
     Active Substance: CYCLOSERINE
     Indication: TUBERCULOSIS
     Dates: start: 20191003, end: 20191127

REACTIONS (2)
  - Hepatitis [Recovered/Resolved]
  - Neuropathy peripheral [Recovering/Resolving]

NARRATIVE: CASE EVENT DATE: 20191108
